FAERS Safety Report 10683023 (Version 2)
Quarter: 2014Q4

REPORT INFORMATION
  Report Type: Report from Study
  Country: CA (occurrence: CA)
  Receive Date: 20141230
  Receipt Date: 20141230
  Transmission Date: 20150529
  Serious: Yes (Other)
  Sender: FDA-Public Use
  Company Number: CA-JNJFOC-20141111791

PATIENT
  Sex: Female
  Weight: 47.9 kg

DRUGS (10)
  1. REMICADE [Suspect]
     Active Substance: INFLIXIMAB
     Indication: CROHN^S DISEASE
     Dosage: 16TH DOSE
     Route: 042
     Dates: start: 20130326
  2. IRON INFUSION [Concomitant]
     Active Substance: IRON
     Route: 065
  3. GABAPENTINE [Concomitant]
     Active Substance: GABAPENTIN
     Route: 065
  4. FENTANYL. [Concomitant]
     Active Substance: FENTANYL
     Route: 065
  5. CRESTOR [Concomitant]
     Active Substance: ROSUVASTATIN CALCIUM
     Route: 065
  6. PLAVIX [Concomitant]
     Active Substance: CLOPIDOGREL BISULFATE
     Route: 065
  7. TECTA [Concomitant]
     Active Substance: PANTOPRAZOLE MAGNESIUM
     Route: 065
  8. VITAMIN B12 [Concomitant]
     Active Substance: CYANOCOBALAMIN
     Route: 065
  9. TETRA [Concomitant]
     Route: 065
  10. ACLASTA [Concomitant]
     Active Substance: ZOLEDRONIC ACID
     Route: 065

REACTIONS (2)
  - Toothache [Recovered/Resolved]
  - Pneumonia [Recovered/Resolved]

NARRATIVE: CASE EVENT DATE: 2014
